FAERS Safety Report 9326048 (Version 4)
Quarter: 2013Q4

REPORT INFORMATION
  Report Type: Report from Study
  Country: US (occurrence: US)
  Receive Date: 20130604
  Receipt Date: 20131015
  Transmission Date: 20140711
  Serious: Yes (Other)
  Sender: FDA-Public Use
  Company Number: US-TEVA-409110USA

PATIENT
  Age: 24 Year
  Sex: Female

DRUGS (3)
  1. CLARAVIS [Suspect]
     Dosage: 80 MILLIGRAM DAILY;
     Route: 048
     Dates: start: 20120925, end: 20130321
  2. BIRTH CONTROL PILLS [Concomitant]
  3. RETIN A [Concomitant]

REACTIONS (1)
  - Pregnancy [Recovered/Resolved]
